FAERS Safety Report 5318561-7 (Version None)
Quarter: 2007Q2

REPORT INFORMATION
  Report Type: 
  Country: None (occurrence: None)
  Receive Date: 20070508
  Receipt Date: 20070507
  Transmission Date: 20071010
  Serious: Yes (Hospitalization)
  Sender: FDA-Public Use
  Company Number: FRWYE595707MAY07

PATIENT
  Age: 36 Year
  Sex: Male

DRUGS (2)
  1. ADVIL [Suspect]
     Indication: TOOTHACHE
     Dosage: TOTAL DAILY DOSE = 4 GRAMMES
     Route: 048
     Dates: start: 20070408, end: 20070408
  2. DOLIPRANE [Suspect]
     Indication: TOOTHACHE
     Dosage: TOTAL DAILY DOSE = 8 GRAMMES
     Route: 048
     Dates: start: 20070408, end: 20070408

REACTIONS (2)
  - ACCIDENTAL OVERDOSE [None]
  - MEDICATION ERROR [None]
